FAERS Safety Report 4358939-1 (Version None)
Quarter: 2004Q2

REPORT INFORMATION
  Report Type: 
  Country: None (occurrence: None)
  Receive Date: 20040511
  Receipt Date: 20040430
  Transmission Date: 20050107
  Serious: No
  Sender: FDA-Public Use
  Company Number: 2004PK00782

PATIENT
  Age: 37 Year
  Sex: Female
  Weight: 62 kg

DRUGS (4)
  1. SEROQUEL [Suspect]
     Indication: MANIA
     Dosage: 200 MG DAILY PO
     Route: 048
     Dates: start: 20031206, end: 20031206
  2. VALIUM [Suspect]
     Indication: MANIA
     Dosage: 25 MG DAILY PO
     Route: 048
     Dates: start: 20031205, end: 20031206
  3. PRAZINA [Concomitant]
  4. QUILONORM RETARD [Concomitant]

REACTIONS (3)
  - BLOOD PRESSURE DECREASED [None]
  - BLOOD PRESSURE SYSTOLIC INCREASED [None]
  - COMA [None]
